FAERS Safety Report 5845584-1 (Version None)
Quarter: 2008Q3

REPORT INFORMATION
  Report Type: 
  Country: None (occurrence: None)
  Receive Date: 20080814
  Receipt Date: 20080812
  Transmission Date: 20090109
  Serious: Yes (Hospitalization, Other)
  Sender: FDA-Public Use
  Company Number: US-BRISTOL-MYERS SQUIBB COMPANY-14220784

PATIENT
  Age: 48 Year
  Sex: Female

DRUGS (9)
  1. ORENCIA [Suspect]
     Indication: RHEUMATOID ARTHRITIS
     Dosage: FIRST INFUSION, 3 DOSAGE FORM = 3 VIALS
     Route: 042
     Dates: start: 20080517
  2. ARAVA [Concomitant]
  3. PLAQUENIL [Concomitant]
  4. PROTONIX [Concomitant]
  5. MOBIC [Concomitant]
  6. PREDNISONE TAB [Concomitant]
  7. TOPROL-XL [Concomitant]
  8. VYTORIN [Concomitant]
  9. AMBIEN [Concomitant]

REACTIONS (1)
  - PERICARDITIS [None]
